FAERS Safety Report 21218543 (Version 1)
Quarter: 2022Q3

REPORT INFORMATION
  Report Type: Report from Study
  Country: FR (occurrence: None)
  Receive Date: 20220816
  Receipt Date: 20220816
  Transmission Date: 20221027
  Serious: Yes (Other)
  Sender: FDA-Public Use
  Company Number: FR-Merck Healthcare KGaA-9342813

PATIENT
  Sex: Female

DRUGS (1)
  1. LEVOTHYROXINE [Suspect]
     Active Substance: LEVOTHYROXINE
     Indication: Autoimmune thyroiditis
     Dates: start: 2017

REACTIONS (5)
  - Suicidal ideation [Unknown]
  - Discomfort [Unknown]
  - Pain [Unknown]
  - Mood swings [Unknown]
  - Psychiatric symptom [Unknown]
